FAERS Safety Report 7574346-2 (Version None)
Quarter: 2011Q2

REPORT INFORMATION
  Report Type: 
  Country: None (occurrence: None)
  Receive Date: 20110627
  Receipt Date: 20110622
  Transmission Date: 20111010
  Serious: Yes (Hospitalization, Disabling, Other)
  Sender: FDA-Public Use
  Company Number: US-MERCK-1004USA01262

PATIENT
  Age: 62 Year
  Sex: Female

DRUGS (10)
  1. METOPROLOL [Concomitant]
     Route: 065
  2. CALCIUM ASCORBATE [Concomitant]
     Route: 065
  3. VITAMINS (UNSPECIFIED) [Concomitant]
     Route: 065
  4. FOSAMAX [Suspect]
     Indication: OSTEOPOROSIS
     Route: 048
     Dates: start: 20020101, end: 20100301
  5. FOSAMAX [Suspect]
     Route: 048
  6. FOSAMAX [Suspect]
     Indication: OSTEOPOROTIC FRACTURE
     Route: 048
     Dates: start: 20020101, end: 20100301
  7. LIPITOR [Concomitant]
     Route: 065
  8. HYDROCHLOROTHIAZIDE [Concomitant]
     Indication: BLOOD PRESSURE
     Route: 048
  9. ASPIRIN [Concomitant]
     Route: 065
  10. FOSAMAX [Suspect]
     Route: 048

REACTIONS (5)
  - LOW TURNOVER OSTEOPATHY [None]
  - FEMUR FRACTURE [None]
  - UPPER LIMB FRACTURE [None]
  - RIB FRACTURE [None]
  - FALL [None]
